FAERS Safety Report 20482415 (Version 1)
Quarter: 2022Q1

REPORT INFORMATION
  Report Type: Spontaneous
  Country: JP (occurrence: JP)
  Receive Date: 20220217
  Receipt Date: 20220217
  Transmission Date: 20220424
  Serious: Yes (Hospitalization, Other)
  Sender: FDA-Public Use
  Company Number: JP-WOCKHARDT BIO AG-2022WBA000017

PATIENT
  Age: 5 Year
  Sex: Female
  Weight: 13.8 kg

DRUGS (4)
  1. FUROSEMIDE [Suspect]
     Active Substance: FUROSEMIDE
     Indication: Bicuspid aortic valve
     Dosage: 1 MG/KG/DAY
     Route: 065
  2. DIAZOXIDE [Suspect]
     Active Substance: DIAZOXIDE
     Indication: Congenital hyperinsulinaemic hypoglycaemia
     Dosage: 5 MG/KG/DAY, QD
     Route: 065
  3. SPIRONOLACTONE [Concomitant]
     Active Substance: SPIRONOLACTONE
     Indication: Aortic valve incompetence
     Dosage: 1 MG/KG/DAY
     Route: 065
  4. Enalapril maleic acid [Concomitant]
     Indication: Product used for unknown indication
     Dosage: 0.1 MG/KG/DAY, QD
     Route: 065

REACTIONS (3)
  - Hyperglycaemic hyperosmolar nonketotic syndrome [Recovered/Resolved]
  - Hypovolaemic shock [Recovered/Resolved]
  - Product use in unapproved indication [Unknown]
